FAERS Safety Report 19318989 (Version 1)
Quarter: 2021Q2

REPORT INFORMATION
  Report Type: Spontaneous
  Country: KR (occurrence: KR)
  Receive Date: 20210527
  Receipt Date: 20210527
  Transmission Date: 20210717
  Serious: Yes (Other)
  Sender: FDA-Public Use
  Company Number: KR-GILEAD-2021-0532741

PATIENT
  Age: 46 Year
  Sex: Male

DRUGS (1)
  1. HEPSERA [Suspect]
     Active Substance: ADEFOVIR DIPIVOXIL
     Indication: CHRONIC HEPATITIS
     Dosage: 10 MG, UNK
     Route: 048
     Dates: start: 20090901, end: 20131021

REACTIONS (1)
  - Fanconi syndrome [Unknown]

NARRATIVE: CASE EVENT DATE: 20121101
